FAERS Safety Report 10027441 (Version 2)
Quarter: 2014Q2

REPORT INFORMATION
  Report Type: Spontaneous
  Country: US (occurrence: US)
  Receive Date: 20140321
  Receipt Date: 20140416
  Transmission Date: 20141212
  Serious: No
  Sender: FDA-Public Use
  Company Number: US-PFIZER INC-2014079740

PATIENT
  Age: 50 Year
  Sex: Male
  Weight: 133.79 kg

DRUGS (7)
  1. SUTENT [Suspect]
     Dosage: UNK
  2. TRAZODONE [Concomitant]
     Dosage: UNK
  3. OXYCONTIN [Concomitant]
     Dosage: UNK
  4. OXYCODONE [Concomitant]
     Dosage: UNK
  5. LORAZEPAM [Concomitant]
     Dosage: UNK
  6. MELATONIN [Concomitant]
     Dosage: UNK
  7. WELLBUTRIN [Concomitant]
     Dosage: UNK

REACTIONS (4)
  - Insomnia [Unknown]
  - Fatigue [Unknown]
  - Gastroenteritis viral [Unknown]
  - Arthralgia [Unknown]
